FAERS Safety Report 9842289 (Version 2)
Quarter: 2014Q1

REPORT INFORMATION
  Report Type: Spontaneous
  Country: US (occurrence: US)
  Receive Date: 20140124
  Receipt Date: 20140124
  Transmission Date: 20141002
  Serious: Yes (Other)
  Sender: FDA-Public Use
  Company Number: US-B.I. PHARMACEUTICALS,INC./RIDGEFIELD-2013-BI-28001BP

PATIENT
  Sex: Male
  Weight: 135.17 kg

DRUGS (7)
  1. PRADAXA [Suspect]
     Dates: start: 20121211, end: 20130212
  2. BAYER ASPIRIN [Concomitant]
  3. ALLEGRA [Concomitant]
  4. FISH OIL [Concomitant]
  5. METOPROLOL [Concomitant]
     Dates: start: 2005
  6. METFORMIN [Concomitant]
     Dates: start: 2005
  7. GLIPIZIDE [Concomitant]
     Dates: start: 2005

REACTIONS (4)
  - Gastrointestinal haemorrhage [Unknown]
  - Anaemia [Unknown]
  - Coagulopathy [Unknown]
  - Contusion [Unknown]
